FAERS Safety Report 4458834-3 (Version None)
Quarter: 2004Q3

REPORT INFORMATION
  Report Type: 
  Country: None (occurrence: None)
  Receive Date: 20040922
  Receipt Date: 20040922
  Transmission Date: 20050211
  Serious: Yes (Life-Threatening, Hospitalization, Disabling)
  Sender: FDA-Public Use
  Company Number: None

PATIENT
  Age: 65 Year
  Sex: Female
  Weight: 71 kg

DRUGS (2)
  1. OXALIPLATIN  85 MG/ M2 [Suspect]
     Indication: ANAL CANCER
     Dosage: 85 MG/M2
     Dates: start: 20040611
  2. XELODA [Suspect]
     Dosage: 1500MG BID
     Dates: start: 20040611, end: 20040617

REACTIONS (4)
  - DIALYSIS [None]
  - OLIGURIA [None]
  - RENAL FAILURE ACUTE [None]
  - RENAL FAILURE CHRONIC [None]
